FAERS Safety Report 7744435-8 (Version None)
Quarter: 2011Q3

REPORT INFORMATION
  Report Type: 
  Country: None (occurrence: None)
  Receive Date: 20110912
  Receipt Date: 20110907
  Transmission Date: 20111222
  Serious: Yes (Hospitalization)
  Sender: FDA-Public Use
  Company Number: JP-PFIZER INC-2011209817

PATIENT
  Age: 74 Year
  Sex: Female

DRUGS (9)
  1. NEUROTROPIN [Suspect]
     Indication: ANALGESIC THERAPY
     Dosage: 16 UNIT/DAY
     Route: 048
     Dates: start: 20110823, end: 20110904
  2. PRAMIPEXOLE DIHYDROCHLORIDE [Concomitant]
     Indication: PARKINSON'S DISEASE
     Dosage: 0.5 MG/DAY
     Route: 048
     Dates: start: 20110213
  3. DEPAS [Concomitant]
     Indication: SLEEP DISORDER THERAPY
     Dosage: 0.5 MG/DAY
     Route: 048
     Dates: start: 20110213
  4. MADOPAR [Concomitant]
     Indication: PARKINSON'S DISEASE
     Dosage: UNK
     Route: 048
     Dates: start: 20110213
  5. VOLTAREN [Suspect]
     Indication: ANALGESIC THERAPY
     Dosage: 25 MG/DAY
     Route: 048
     Dates: start: 20110804, end: 20110904
  6. ALENDRONATE SODIUM [Suspect]
     Indication: OSTEOPOROSIS
     Dosage: 75 MG, WEEKLY
     Route: 048
     Dates: start: 20110823, end: 20110830
  7. CEROCRAL [Concomitant]
     Indication: PARKINSON'S DISEASE
     Dosage: 20 MG/DAY
     Route: 048
     Dates: start: 20110828
  8. ZOLOFT [Suspect]
     Indication: ANTIDEPRESSANT THERAPY
     Dosage: 25 MG/DAY
     Route: 048
     Dates: start: 20110823, end: 20110904
  9. TIZANIDINE HYDROCHLORIDE [Concomitant]
     Indication: ANALGESIC THERAPY
     Dosage: 1 MG/DAY
     Route: 048
     Dates: start: 20110213

REACTIONS (3)
  - DECREASED APPETITE [None]
  - HYPOKINESIA [None]
  - BLOOD CREATINE PHOSPHOKINASE INCREASED [None]
